FAERS Safety Report 6347170-6 (Version None)
Quarter: 2009Q3

REPORT INFORMATION
  Report Type: 
  Country: None (occurrence: None)
  Receive Date: 20090910
  Receipt Date: 20090831
  Transmission Date: 20100115
  Serious: Yes (Other)
  Sender: FDA-Public Use
  Company Number: PHHY2009CL36984

PATIENT
  Sex: Female

DRUGS (7)
  1. CYCLOSPORINE [Suspect]
     Indication: RENAL TRANSPLANT
     Dosage: 5 MG/KG/DAY
     Dates: start: 20010304
  2. BASILIXIMAB [Suspect]
     Indication: RENAL TRANSPLANT
     Dosage: 20 MG, ONCE/SINGLE
     Route: 042
  3. BASILIXIMAB [Suspect]
     Dosage: 20 MG, ONCE/SINGLE
     Route: 042
  4. PREDNISOLONE [Concomitant]
     Indication: RENAL TRANSPLANT
  5. AZATHIOPRINE [Concomitant]
     Indication: RENAL TRANSPLANT
     Dosage: UNK
  6. PREDNISONE [Concomitant]
  7. KETOCONAZOLE [Concomitant]
     Dosage: UNK

REACTIONS (6)
  - ABORTION SPONTANEOUS [None]
  - DRUG EXPOSURE DURING PREGNANCY [None]
  - HYPERTENSION [None]
  - HYPERTRICHOSIS [None]
  - PREGNANCY [None]
  - PYELONEPHRITIS ACUTE [None]
